FAERS Safety Report 16398338 (Version 1)
Quarter: 2019Q3

REPORT INFORMATION
  Report Type: Spontaneous
  Country: US (occurrence: US)
  Receive Date: 20190605
  Receipt Date: 20190605
  Transmission Date: 20191004
  Serious: Yes (Other)
  Sender: FDA-Public Use
  Company Number: None

PATIENT
  Age: 15 Year
  Sex: Male
  Weight: 72 kg

DRUGS (2)
  1. OMEPRAZOLE. [Concomitant]
     Active Substance: OMEPRAZOLE
  2. MIRALAX [Suspect]
     Active Substance: POLYETHYLENE GLYCOL 3350
     Indication: CONSTIPATION
     Dosage: ?          QUANTITY:1 CAPFUL IN 8 OZ H2O;?
     Route: 048
     Dates: start: 20180301, end: 20180430

REACTIONS (5)
  - Anxiety [None]
  - Paraesthesia [None]
  - Dizziness [None]
  - Seizure [None]
  - Vision blurred [None]

NARRATIVE: CASE EVENT DATE: 20180413
